FAERS Safety Report 11282559 (Version 1)
Quarter: 2015Q3

REPORT INFORMATION
  Report Type: Spontaneous
  Country: US (occurrence: None)
  Receive Date: 20150716
  Receipt Date: 20150716
  Transmission Date: 20151125
  Serious: Yes (Death, Hospitalization)
  Sender: FDA-Public Use
  Company Number: US-H14001-15-01251

PATIENT
  Age: 73 Year
  Sex: Female

DRUGS (5)
  1. INFUMORPH [Suspect]
     Active Substance: MORPHINE SULFATE
     Indication: PAIN
     Route: 037
  2. PAIN MEDICATION (OTHER ANALGESICS AND ANTIPYRETICS) [Concomitant]
  3. SEDATION (OTHER THERAPEUTIC PRODUCTS) [Concomitant]
  4. INFUMORPH [Suspect]
     Active Substance: MORPHINE SULFATE
     Indication: BACK PAIN
     Route: 037
  5. INFUMORPH [Suspect]
     Active Substance: MORPHINE SULFATE
     Indication: POST LAMINECTOMY SYNDROME
     Route: 037

REACTIONS (3)
  - Road traffic accident [None]
  - Spinal fracture [None]
  - Respiratory failure [None]

NARRATIVE: CASE EVENT DATE: 2015
